FAERS Safety Report 18693580 (Version 3)
Quarter: 2021Q2

REPORT INFORMATION
  Report Type: Report from Study
  Country: None (occurrence: NL)
  Receive Date: 20210104
  Receipt Date: 20210606
  Transmission Date: 20210717
  Serious: Yes (Hospitalization)
  Sender: FDA-Public Use
  Company Number: NL-ABBVIE-20K-114-3506625-00

PATIENT
  Age: 72 Year
  Sex: Male

DRUGS (10)
  1. DIPROSONE [Concomitant]
     Active Substance: BETAMETHASONE DIPROPIONATE
     Indication: PRODUCT USED FOR UNKNOWN INDICATION
  2. LEVODOPA/CARBIDOPA [Suspect]
     Active Substance: CARBIDOPA\LEVODOPA
     Dosage: MD: 7.1ML, CD: 3.8 ML/H, ED: 1.0ML, 16 HOURS
     Route: 050
  3. LEVODOPA/CARBIDOPA [Suspect]
     Active Substance: CARBIDOPA\LEVODOPA
     Dosage: MD:7,1 ML, CD:3,8 ML/H, ED:1,0 ML, CND:2,9 ML/H END:1,0 ML
     Route: 050
  4. LEVODOPA/CARBIDOPA [Suspect]
     Active Substance: CARBIDOPA\LEVODOPA
     Indication: PARKINSON^S DISEASE
     Dosage: MD: 7.1 ML, CD: 3.8 ML/H, ED: 1 ML, CND: 2.7 ML/H, END: 1.5 ML,
     Route: 050
     Dates: start: 20130711
  5. DICLOFENAC [Suspect]
     Active Substance: DICLOFENAC
     Indication: NECK PAIN
     Route: 065
  6. LEVODOPA/CARBIDOPA [Suspect]
     Active Substance: CARBIDOPA\LEVODOPA
     Dosage: MD: 7.1ML, CD: 3.8ML/H, ED: 1.0ML, CND: 2.9ML/H, END: 1.5ML,
     Route: 050
  7. LEVODOPA/CARBIDOPA [Suspect]
     Active Substance: CARBIDOPA\LEVODOPA
     Dosage: MD: 7.1ML, CD: 4.0ML/H, ED: 1.0ML,
     Route: 050
  8. LEVODOPA/CARBIDOPA [Suspect]
     Active Substance: CARBIDOPA\LEVODOPA
     Dosage: MD:7,1ML, CD:3,8ML/H, ED:1,0ML, NCD:2,9ML/H END:1,5ML
     Route: 050
  9. LEVODOPA/CARBIDOPA [Suspect]
     Active Substance: CARBIDOPA\LEVODOPA
     Dosage: CD: 3.8ML/H, CDN: 2.9ML/H, EDN: 1.5ML,
     Route: 050
  10. LEVODOPA/CARBIDOPA [Suspect]
     Active Substance: CARBIDOPA\LEVODOPA
     Dosage: MD: 0.0ML, CDN: 2.9ML/H, EDN: 1.5ML,
     Route: 050

REACTIONS (35)
  - Arrhythmia [Recovered/Resolved]
  - Cardiac disorder [Recovering/Resolving]
  - Chorea [Recovering/Resolving]
  - Muscle spasms [Not Recovered/Not Resolved]
  - Hallucination, visual [Not Recovered/Not Resolved]
  - Abnormal dreams [Not Recovered/Not Resolved]
  - Fatigue [Not Recovered/Not Resolved]
  - Back pain [Not Recovered/Not Resolved]
  - Nightmare [Recovered/Resolved]
  - Weight increased [Recovering/Resolving]
  - Dyskinesia [Not Recovered/Not Resolved]
  - Memory impairment [Not Recovered/Not Resolved]
  - Motor dysfunction [Unknown]
  - Muscle rigidity [Not Recovered/Not Resolved]
  - Faeces hard [Not Recovered/Not Resolved]
  - Gait disturbance [Not Recovered/Not Resolved]
  - Bradykinesia [Not Recovered/Not Resolved]
  - Dizziness [Recovering/Resolving]
  - Stoma site discharge [Recovered/Resolved]
  - Stoma site erythema [Recovered/Resolved]
  - Tension [Unknown]
  - Device difficult to use [Recovered/Resolved]
  - Device breakage [Unknown]
  - Nocturia [Not Recovered/Not Resolved]
  - Freezing phenomenon [Not Recovered/Not Resolved]
  - Medical device change [Recovered/Resolved]
  - Poor quality sleep [Recovered/Resolved]
  - Embedded device [Not Recovered/Not Resolved]
  - On and off phenomenon [Not Recovered/Not Resolved]
  - Cogwheel rigidity [Not Recovered/Not Resolved]
  - Mobility decreased [Not Recovered/Not Resolved]
  - Tremor [Not Recovered/Not Resolved]
  - Abnormal dreams [Recovered/Resolved]
  - Neck pain [Not Recovered/Not Resolved]
  - Stoma site erythema [Not Recovered/Not Resolved]

NARRATIVE: CASE EVENT DATE: 2020
